FAERS Safety Report 17107102 (Version 3)
Quarter: 2022Q2

REPORT INFORMATION
  Report Type: Report from Study
  Country: CO (occurrence: CO)
  Receive Date: 20191203
  Receipt Date: 20220411
  Transmission Date: 20220721
  Serious: Yes (Death, Hospitalization, Other)
  Sender: FDA-Public Use
  Company Number: CO-ASTELLAS-2019US047830

PATIENT
  Age: 38 Year
  Sex: Male
  Weight: 49 kg

DRUGS (2)
  1. TACROLIMUS [Suspect]
     Active Substance: TACROLIMUS
     Indication: Renal transplant
     Dosage: 3 MG IN MORNING AND 4 MG IN AFTERNOON (TWICE DAILY)
     Route: 048
     Dates: start: 20181130
  2. TACROLIMUS [Suspect]
     Active Substance: TACROLIMUS
     Indication: Product used for unknown indication
     Route: 048
     Dates: start: 20220201

REACTIONS (9)
  - Death [Fatal]
  - Malnutrition [Recovering/Resolving]
  - Anaemia [Recovering/Resolving]
  - Blood glucose increased [Recovered/Resolved]
  - Arrhythmia [Recovering/Resolving]
  - General physical health deterioration [Recovering/Resolving]
  - Asthenia [Recovering/Resolving]
  - Pneumonia [Recovering/Resolving]
  - Diarrhoea [Recovering/Resolving]

NARRATIVE: CASE EVENT DATE: 20191101
